FAERS Safety Report 9008933 (Version 1)
Quarter: 2013Q1

REPORT INFORMATION
  Report Type: Spontaneous
  Country: FR (occurrence: FR)
  Receive Date: 20130111
  Receipt Date: 20130111
  Transmission Date: 20140127
  Serious: Yes (Other)
  Sender: FDA-Public Use
  Company Number: FR-ASTRAZENECA-2012SE82639

PATIENT
  Age: 22162 Day
  Sex: Male
  Weight: 118 kg

DRUGS (13)
  1. SYMBICORT TBH [Suspect]
     Indication: ASTHMA
     Dosage: 320/9 UG PER DOSE, TWO INHALATIONS TWICE PER DAY
     Route: 055
     Dates: start: 2007, end: 20120907
  2. GLICAZIDE [Concomitant]
     Indication: DIABETES MELLITUS
     Route: 048
     Dates: end: 201209
  3. GLICAZIDE [Concomitant]
     Indication: DIABETES MELLITUS
     Route: 048
     Dates: start: 201209
  4. TAHOR [Concomitant]
     Indication: HYPERCHOLESTEROLAEMIA
     Route: 048
     Dates: end: 201209
  5. TAHOR [Concomitant]
     Indication: HYPERCHOLESTEROLAEMIA
     Route: 048
     Dates: start: 201209
  6. METFORMIN [Concomitant]
     Indication: DIABETES MELLITUS
     Route: 048
     Dates: start: 201101
  7. RAMIPRIL [Concomitant]
     Indication: HYPERTENSION
     Route: 048
     Dates: start: 201101, end: 201209
  8. RAMIPRIL [Concomitant]
     Indication: HYPERTENSION
     Route: 048
     Dates: start: 201209
  9. NEBIVOLOL [Concomitant]
     Indication: HYPERTENSION
     Route: 048
     Dates: end: 201209
  10. MONOTILDIEM [Concomitant]
     Indication: HYPERTENSION
     Route: 048
     Dates: end: 201209
  11. RILMENIDINE [Concomitant]
     Indication: HYPERTENSION
     Route: 048
  12. DOLIPRANE [Concomitant]
     Dosage: AS REQUIRED
     Route: 048
  13. ASPEGIC [Concomitant]
     Dosage: AS REQUIRED
     Route: 048

REACTIONS (3)
  - Oedema peripheral [Recovered/Resolved]
  - Pain in extremity [Recovered/Resolved]
  - Muscle spasms [Recovered/Resolved]
